FAERS Safety Report 5554950-3 (Version None)
Quarter: 2007Q4

REPORT INFORMATION
  Report Type: 
  Country: None (occurrence: None)
  Receive Date: 20071213
  Receipt Date: 20071210
  Transmission Date: 20080405
  Serious: Yes (Hospitalization, Other)
  Sender: FDA-Public Use
  Company Number: US-PFIZER INC-2006115620

PATIENT
  Age: 61 Year
  Sex: Female

DRUGS (4)
  1. CELEBREX [Suspect]
     Indication: MUSCLE SPASMS
     Route: 048
  2. CELEBREX [Suspect]
  3. VIOXX [Suspect]
     Route: 048
     Dates: start: 19990101
  4. PERCOCET [Concomitant]
     Indication: PAIN
     Dates: start: 19991201, end: 20001130

REACTIONS (2)
  - CEREBROVASCULAR ACCIDENT [None]
  - PARALYSIS [None]
